FAERS Safety Report 8809057 (Version 2)
Quarter: 2012Q4

REPORT INFORMATION
  Report Type: 
  Country: US (occurrence: US)
  Receive Date: 20120926
  Receipt Date: 20121019
  Transmission Date: 20130627
  Serious: Yes (Hospitalization)
  Sender: FDA-Public Use
  Company Number: US-JNJFOC-20120907149

PATIENT
  Age: 74 Year
  Sex: Male
  Weight: 97.52 kg

DRUGS (10)
  1. BENGAY VANISHING SCENT [Suspect]
     Indication: PAIN IN EXTREMITY
     Dosage: a dabfull
     Route: 061
     Dates: start: 20120505, end: 20120505
  2. BABY ASPIRIN [Concomitant]
     Indication: ATRIAL FIBRILLATION
     Route: 065
     Dates: start: 2008
  3. PROSCAR [Concomitant]
     Indication: BENIGN PROSTATIC HYPERPLASIA
     Route: 065
     Dates: start: 2002
  4. ZOCOR [Concomitant]
     Indication: BLOOD CHOLESTEROL
     Route: 065
     Dates: start: 2002
  5. COUMADIN [Concomitant]
     Indication: ATRIAL FIBRILLATION
     Route: 065
     Dates: start: 2010
  6. ATROVENT INHALER [Concomitant]
     Indication: CHRONIC OBSTRUCTIVE PULMONARY DISEASE
     Route: 065
  7. MULTIVITAMINS [Concomitant]
     Indication: NUTRITIONAL SUPPORT
     Route: 065
  8. FISH OIL [Concomitant]
     Indication: BLOOD CHOLESTEROL
     Route: 065
     Dates: start: 2008
  9. FLOMAX [Concomitant]
     Indication: BENIGN PROSTATIC HYPERPLASIA
     Route: 065
     Dates: start: 2002
  10. ATENOLOL [Concomitant]
     Indication: HYPERTENSION
     Route: 065

REACTIONS (3)
  - Blister [Recovering/Resolving]
  - Dermatitis [Recovering/Resolving]
  - Expired drug administered [Unknown]
